FAERS Safety Report 9717555 (Version 1)
Quarter: 2013Q4

REPORT INFORMATION
  Report Type: Spontaneous
  Country: US (occurrence: US)
  Receive Date: 20131127
  Receipt Date: 20131127
  Transmission Date: 20140711
  Serious: No
  Sender: FDA-Public Use
  Company Number: US-GILEAD-2009-0020426

PATIENT
  Sex: Male
  Weight: 91.63 kg

DRUGS (17)
  1. LETAIRIS [Suspect]
     Indication: PULMONARY ARTERIAL HYPERTENSION
     Route: 048
     Dates: start: 20081117
  2. ISOSORBIDE DN [Concomitant]
  3. ASPIRIN [Concomitant]
  4. LASIX [Concomitant]
  5. METOLAZONE [Concomitant]
  6. XOPENEX [Concomitant]
  7. CRESTOR [Concomitant]
  8. ADVAIR [Concomitant]
  9. PREDNISONE [Concomitant]
  10. PULMICORT [Concomitant]
  11. FLOMAX [Concomitant]
  12. SPIRIVA [Concomitant]
  13. AZITHROMYCIN [Concomitant]
  14. MUCINEX [Concomitant]
  15. XANAX [Concomitant]
  16. PRESERVISION SOFTGEL [Concomitant]
  17. CENTRUM SILVER [Concomitant]

REACTIONS (3)
  - Pruritus [Unknown]
  - Dyspnoea [Unknown]
  - Oedema [Unknown]
